FAERS Safety Report 12823738 (Version 1)
Quarter: 2016Q4

REPORT INFORMATION
  Report Type: Spontaneous
  Country: US (occurrence: US)
  Receive Date: 20161006
  Receipt Date: 20161006
  Transmission Date: 20170207
  Serious: Yes (Hospitalization)
  Sender: FDA-Public Use
  Company Number: None

PATIENT
  Age: 66 Year
  Sex: Male
  Weight: 76.4 kg

DRUGS (1)
  1. SULFAMETHOXAZOLE/TRIMETHOPRIM [Suspect]
     Active Substance: SULFAMETHOXAZOLE\TRIMETHOPRIM
     Indication: INFECTION
     Dates: start: 20160910, end: 20160913

REACTIONS (5)
  - Thrombocytopenia [None]
  - Folate deficiency [None]
  - Anaemia macrocytic [None]
  - Pancytopenia [None]
  - Abdominal pain lower [None]

NARRATIVE: CASE EVENT DATE: 20160913
